FAERS Safety Report 24891134 (Version 2)
Quarter: 2025Q1

REPORT INFORMATION
  Report Type: Spontaneous
  Country: US (occurrence: US)
  Receive Date: 20250127
  Receipt Date: 20250307
  Transmission Date: 20250409
  Serious: Yes (Hospitalization)
  Sender: SANOFI AVENTIS
  Company Number: US-SA-2025SA022189

PATIENT
  Sex: Male

DRUGS (16)
  1. KEVZARA [Suspect]
     Active Substance: SARILUMAB
     Indication: Tenosynovitis
     Dosage: 200 MG, QOW
     Route: 058
  2. KEVZARA [Suspect]
     Active Substance: SARILUMAB
     Indication: Rheumatoid arthritis
  3. ALLOPURINOL [Concomitant]
     Active Substance: ALLOPURINOL
  4. CELECOXIB [Concomitant]
     Active Substance: CELECOXIB
  5. DULOXETINE HYDROCHLORIDE [Concomitant]
     Active Substance: DULOXETINE HYDROCHLORIDE
  6. FUROSEMIDE [Concomitant]
     Active Substance: FUROSEMIDE
  7. ONDANSETRON [Concomitant]
     Active Substance: ONDANSETRON
  8. OXYCODONE HYDROCHLORIDE [Concomitant]
     Active Substance: OXYCODONE HYDROCHLORIDE
  9. PREDNISONE [Concomitant]
     Active Substance: PREDNISONE
  10. PREGABALIN [Concomitant]
     Active Substance: PREGABALIN
  11. TAMSULOSIN HYDROCHLORIDE [Concomitant]
     Active Substance: TAMSULOSIN HYDROCHLORIDE
  12. TORSEMIDE [Concomitant]
     Active Substance: TORSEMIDE
  13. AMITRIPTYLINE [Concomitant]
     Active Substance: AMITRIPTYLINE
  14. AMOXICILLIN [Concomitant]
     Active Substance: AMOXICILLIN
  15. ATORVASTATIN [Concomitant]
     Active Substance: ATORVASTATIN
  16. PANTOPRAZOLE [Concomitant]
     Active Substance: PANTOPRAZOLE

REACTIONS (7)
  - Haematological infection [Recovered/Resolved]
  - Blood pressure decreased [Recovered/Resolved]
  - White blood cell count decreased [Unknown]
  - Gastrointestinal disorder [Unknown]
  - Cough [Unknown]
  - Sneezing [Unknown]
  - Product use in unapproved indication [Unknown]
